FAERS Safety Report 9110021 (Version 3)
Quarter: 2013Q2

REPORT INFORMATION
  Report Type: Spontaneous
  Country: ES (occurrence: ES)
  Receive Date: 20130222
  Receipt Date: 20130419
  Transmission Date: 20140414
  Serious: Yes (Death, Hospitalization)
  Sender: FDA-Public Use
  Company Number: ES-GENZYME-THYM-1003643

PATIENT
  Age: 45 Year
  Sex: Male

DRUGS (5)
  1. THYMOGLOBULINE [Suspect]
     Indication: BONE MARROW CONDITIONING REGIMEN
     Dosage: 200.75 MG, QD
     Route: 042
     Dates: start: 20101206, end: 20101208
  2. FLUDARA [Suspect]
     Indication: BONE MARROW CONDITIONING REGIMEN
     Dosage: 60 MG, QD
     Route: 042
     Dates: start: 20101204, end: 20101207
  3. CYCLOPHOSPHAMIDE [Concomitant]
     Indication: BONE MARROW CONDITIONING REGIMEN
     Dosage: 2400 MG, QD
     Route: 042
     Dates: start: 20101130, end: 20101203
  4. CICLOSPORIN [Concomitant]
     Indication: PROPHYLAXIS AGAINST TRANSPLANT REJECTION
     Dosage: UNK
     Route: 048
     Dates: start: 201012
  5. METHOTREXATE [Concomitant]
     Indication: PROPHYLAXIS AGAINST TRANSPLANT REJECTION
     Dosage: UNK
     Route: 065
     Dates: start: 201012

REACTIONS (5)
  - Bone marrow failure [Fatal]
  - Septic shock [Fatal]
  - Tracheitis [Fatal]
  - Pneumonia [Fatal]
  - Post transplant lymphoproliferative disorder [Recovered/Resolved]
